FAERS Safety Report 8556709 (Version 4)
Quarter: 2013Q1

REPORT INFORMATION
  Report Type: Report from Study
  Country: US (occurrence: US)
  Receive Date: 20120510
  Receipt Date: 20130228
  Transmission Date: 20140127
  Serious: Yes (Life-Threatening, Hospitalization)
  Sender: FDA-Public Use
  Company Number: US-ROCHE-1066501

PATIENT
  Age: 55 Year
  Sex: Female
  Weight: 93.88 kg

DRUGS (9)
  1. PEG-INTERFERON ALFA 2A [Suspect]
     Indication: HEPATITIS C
     Route: 058
     Dates: start: 20120120, end: 20120127
  2. RIBAVIRIN [Suspect]
     Indication: HEPATITIS C
     Dosage: 3 DOSAGE FORM
     Route: 048
     Dates: start: 20120120, end: 20120129
  3. ALISPORIVIR [Suspect]
     Indication: HEPATITIS C
     Route: 048
     Dates: start: 20120120, end: 20120129
  4. LISINOPRIL [Concomitant]
  5. CLONAZEPAM [Concomitant]
     Route: 065
     Dates: end: 20120127
  6. ACETAMINOPHEN [Concomitant]
  7. NAPROXEN [Concomitant]
  8. VITAMIN C [Concomitant]
  9. CALCIUM [Concomitant]

REACTIONS (3)
  - Subarachnoid haemorrhage [Recovered/Resolved]
  - Intraventricular haemorrhage [Recovered/Resolved]
  - Concomitant disease progression [Recovered/Resolved]
